FAERS Safety Report 15758296 (Version 1)
Quarter: 2018Q4

REPORT INFORMATION
  Report Type: Spontaneous
  Country: IT (occurrence: IT)
  Receive Date: 20181225
  Receipt Date: 20181225
  Transmission Date: 20190205
  Serious: Yes (Other)
  Sender: FDA-Public Use
  Company Number: IT-AUROBINDO-AUR-APL-2018-062342

PATIENT
  Age: 49 Year
  Sex: Female
  Weight: 56 kg

DRUGS (2)
  1. DULOXETINE. [Suspect]
     Active Substance: DULOXETINE
     Indication: PANIC ATTACK
     Dosage: UNK
     Route: 065
  2. DULOXETINE. [Suspect]
     Active Substance: DULOXETINE
     Dosage: 120 MILLIGRAM, DAILY
     Route: 048
     Dates: start: 20120825, end: 20180503

REACTIONS (4)
  - Rabies [Not Recovered/Not Resolved]
  - Nervousness [Not Recovered/Not Resolved]
  - Impulsive behaviour [Not Recovered/Not Resolved]
  - Overdose [Unknown]

NARRATIVE: CASE EVENT DATE: 20180503
